FAERS Safety Report 16394089 (Version 1)
Quarter: 2019Q2

REPORT INFORMATION
  Report Type: Spontaneous
  Country: IT (occurrence: IT)
  Receive Date: 20190605
  Receipt Date: 20190605
  Transmission Date: 20190711
  Serious: Yes (Hospitalization)
  Sender: FDA-Public Use
  Company Number: IT-PFIZER INC-2019233931

PATIENT
  Age: 69 Year
  Sex: Female

DRUGS (12)
  1. ACETYLSALICYLIC ACID [Concomitant]
     Active Substance: ASPIRIN
     Dosage: 100 MG, UNK
  2. BLOPRESID [Concomitant]
     Active Substance: CANDESARTAN CILEXETIL\HYDROCHLOROTHIAZIDE
     Dosage: 32 MG, UNK
  3. DIBASE [Concomitant]
     Active Substance: CHOLECALCIFEROL
  4. PANTORC [Concomitant]
     Active Substance: PANTOPRAZOLE SODIUM
     Dosage: 20 MG, UNK
  5. DOBETIN [CYANOCOBALAMIN] [Concomitant]
     Dosage: 5000 UG, UNK
  6. FLECAINIDE AUROBINDO [Concomitant]
     Dosage: 100 MG, UNK
  7. MEDROL [Suspect]
     Active Substance: METHYLPREDNISOLONE
     Indication: ANTIINFLAMMATORY THERAPY
     Dosage: 16 MG, 1X/DAY
     Route: 048
     Dates: start: 20180101, end: 20180615
  8. TAVOR (LORAZEPAM) [Concomitant]
     Active Substance: LORAZEPAM
     Dosage: 1 MG, UNK
  9. MINIAS [Concomitant]
     Active Substance: LORMETAZEPAM
     Dosage: 2.5 MG, UNK
  10. EUTIROX [Concomitant]
     Active Substance: LEVOTHYROXINE SODIUM
     Dosage: 100 UG, UNK
  11. ONCO CARBIDE [Concomitant]
     Active Substance: HYDROXYUREA
     Dosage: 500 MG, UNK
  12. SEREUPIN [Concomitant]
     Active Substance: PAROXETINE HYDROCHLORIDE

REACTIONS (2)
  - Pyrexia [Unknown]
  - Dyspnoea [Unknown]

NARRATIVE: CASE EVENT DATE: 20180615
